FAERS Safety Report 14862776 (Version 1)
Quarter: 2018Q2

REPORT INFORMATION
  Report Type: Spontaneous
  Country: US (occurrence: US)
  Receive Date: 20180508
  Receipt Date: 20180508
  Transmission Date: 20180711
  Serious: Yes (Disabling)
  Sender: FDA-Public Use
  Company Number: US-009507513-1805USA001949

PATIENT
  Age: 70 Year
  Sex: Male

DRUGS (3)
  1. IBUPROFEN. [Concomitant]
     Active Substance: IBUPROFEN
     Dosage: AT BEDTIME
  2. KEYTRUDA [Suspect]
     Active Substance: PEMBROLIZUMAB
     Indication: METASTATIC MALIGNANT MELANOMA
     Dosage: UNK
     Route: 042
     Dates: start: 201801, end: 2018
  3. PREDNISONE. [Suspect]
     Active Substance: PREDNISONE
     Dosage: ONE HALF MG, THREE TIMES PER DAY
     Route: 048
     Dates: start: 2018, end: 2018

REACTIONS (5)
  - Myalgia [Recovering/Resolving]
  - Movement disorder [Recovering/Resolving]
  - Arthralgia [Recovering/Resolving]
  - Nightmare [Recovering/Resolving]
  - Dyspnoea [Recovering/Resolving]

NARRATIVE: CASE EVENT DATE: 2018
